FAERS Safety Report 6056827-6 (Version None)
Quarter: 2009Q1

REPORT INFORMATION
  Report Type: 
  Country: None (occurrence: None)
  Receive Date: 20090126
  Receipt Date: 20090126
  Transmission Date: 20090719
  Serious: Yes (Hospitalization)
  Sender: FDA-Public Use
  Company Number: None

PATIENT
  Age: 52 Year
  Sex: Female
  Weight: 74.8435 kg

DRUGS (2)
  1. WELLBUTRIN [Suspect]
     Indication: BEREAVEMENT REACTION
     Dosage: 150MG 1 DAY MORNING PO
     Route: 048
     Dates: start: 20080901, end: 20090105
  2. WELLBUTRIN [Suspect]
     Indication: DEPRESSION
     Dosage: 150MG 1 DAY MORNING PO
     Route: 048
     Dates: start: 20080901, end: 20090105

REACTIONS (10)
  - DYSSTASIA [None]
  - HYPERTENSION [None]
  - HYPOAESTHESIA [None]
  - MOVEMENT DISORDER [None]
  - MUSCLE INJURY [None]
  - MUSCLE SPASMS [None]
  - MUSCLE TIGHTNESS [None]
  - MYALGIA [None]
  - NECK PAIN [None]
  - NUCLEAR MAGNETIC RESONANCE IMAGING ABNORMAL [None]
